FAERS Safety Report 4663712-0 (Version None)
Quarter: 2005Q2

REPORT INFORMATION
  Report Type: 
  Country: None (occurrence: None)
  Receive Date: 20050516
  Receipt Date: 20050502
  Transmission Date: 20051028
  Serious: Yes (Other)
  Sender: FDA-Public Use
  Company Number: HQWYE196016JUL04

PATIENT
  Age: 55 Year
  Sex: Female
  Weight: 77.18 kg

DRUGS (3)
  1. PREMPRO [Suspect]
     Indication: HORMONE REPLACEMENT THERAPY
     Dosage: ORAL
     Route: 048
     Dates: end: 19970101
  2. PREMARIN [Suspect]
     Indication: OESTROGEN REPLACEMENT THERAPY
     Dosage: 0.625 MG, ORAL
     Route: 048
     Dates: start: 19830101
  3. HYDROCHLOROTHIAZID (HYDROCHLOROTHIAZIDE) [Concomitant]

REACTIONS (4)
  - ANXIETY [None]
  - BIOPSY LYMPH GLAND ABNORMAL [None]
  - BREAST CANCER METASTATIC [None]
  - DEPRESSION [None]
